FAERS Safety Report 8946546 (Version 1)
Quarter: 2012Q4

REPORT INFORMATION
  Report Type: 
  Country: US (occurrence: US)
  Receive Date: 20121204
  Receipt Date: 20121204
  Transmission Date: 20130627
  Serious: No
  Sender: FDA-Public Use
  Company Number: US-AMGEN-USASP2012077094

PATIENT
  Age: 66 Year
  Sex: Female

DRUGS (2)
  1. ENBREL [Suspect]
     Indication: RHEUMATOID ARTHRITIS
     Dosage: 50 mg, qwk
     Dates: start: 20120313
  2. METOTREXATE [Concomitant]
     Dosage: 10 UNK, UNK
     Dates: start: 2010

REACTIONS (3)
  - Pain [Recovered/Resolved]
  - Productive cough [Recovered/Resolved]
  - Palpitations [Recovered/Resolved]
